FAERS Safety Report 12394505 (Version 1)
Quarter: 2016Q2

REPORT INFORMATION
  Report Type: Spontaneous
  Country: US (occurrence: US)
  Receive Date: 20160523
  Receipt Date: 20160523
  Transmission Date: 20160815
  Serious: No
  Sender: FDA-Public Use
  Company Number: US-BAYER-2016-093906

PATIENT
  Sex: Female
  Weight: 72.56 kg

DRUGS (3)
  1. MIRALAX [Suspect]
     Active Substance: POLYETHYLENE GLYCOL 3350
     Indication: COLONOSCOPY
     Dosage: 1 DF, PRN
     Route: 048
     Dates: start: 2010
  2. MIRALAX [Suspect]
     Active Substance: POLYETHYLENE GLYCOL 3350
     Indication: COLONOSCOPY
     Dosage: 7 DF IN 2 HOURS
  3. TRICOR [Concomitant]
     Active Substance: FENOFIBRATE
     Dosage: UNK

REACTIONS (7)
  - Ligament disorder [Not Recovered/Not Resolved]
  - Trigger finger [None]
  - Muscle spasms [Not Recovered/Not Resolved]
  - Joint lock [Not Recovered/Not Resolved]
  - Extremity contracture [Not Recovered/Not Resolved]
  - Product use issue [None]
  - Off label use [None]
